FAERS Safety Report 6992728 (Version 4)
Quarter: 2014Q2

REPORT INFORMATION
  Report Type: Spontaneous
  Country: US (occurrence: US)
  Receive Date: 20060721
  Receipt Date: 20131018
  Transmission Date: 20141212
  Serious: Yes (Other)
  Sender: FDA-Public Use
  Company Number: US-PFIZER INC-2006087864

PATIENT
  Age: 66 Year
  Sex: Female

DRUGS (10)
  1. PROVERA [Suspect]
     Indication: HORMONE REPLACEMENT THERAPY
     Dosage: 10 MG, UNK
     Route: 048
     Dates: start: 1987, end: 1998
  2. PROVERA [Suspect]
     Dosage: 2.5 MG, UNK
     Route: 048
     Dates: start: 1998, end: 2000
  3. OGEN [Suspect]
     Indication: HORMONE REPLACEMENT THERAPY
     Dosage: 0.625 (UNKNOWN UNITS)
     Route: 048
     Dates: start: 1998, end: 2000
  4. PREMARIN [Suspect]
     Indication: HORMONE REPLACEMENT THERAPY
     Dosage: 0.625 (UNKNOWN UNITS)
     Route: 048
     Dates: start: 1987, end: 1998
  5. PREMARIN [Suspect]
     Indication: HORMONE REPLACEMENT THERAPY
     Dosage: UNK
     Route: 067
  6. PREMPRO [Suspect]
     Indication: HORMONE REPLACEMENT THERAPY
     Dosage: UNK
     Route: 048
  7. MEDROXYPROGESTERONE ACETATE [Suspect]
     Indication: HORMONE REPLACEMENT THERAPY
     Dosage: UNK
     Route: 048
  8. ESTROPIPATE [Suspect]
     Indication: HORMONE REPLACEMENT THERAPY
     Dosage: UNK
     Route: 048
  9. CYCRIN [Suspect]
     Indication: HORMONE REPLACEMENT THERAPY
     Dosage: UNK
     Route: 048
  10. MEDROXYPROGESTERONE ACETATE [Suspect]
     Indication: HORMONE REPLACEMENT THERAPY
     Dosage: UNK
     Route: 048
     Dates: start: 1998, end: 200006

REACTIONS (1)
  - Breast cancer female [Unknown]
